FAERS Safety Report 17053050 (Version 1)
Quarter: 2019Q4

REPORT INFORMATION
  Report Type: Spontaneous
  Country: US (occurrence: US)
  Receive Date: 20191021
  Receipt Date: 20191021
  Transmission Date: 20200122
  Serious: Yes (Hospitalization)
  Sender: FDA-Public Use
  Company Number: None

PATIENT
  Age: 75 Year
  Sex: Male
  Weight: 83.91 kg

DRUGS (3)
  1. LISINOPRIL. [Concomitant]
     Active Substance: LISINOPRIL
  2. BASIC VITAMINS [Concomitant]
  3. KEFLEX [Suspect]
     Active Substance: CEPHALEXIN

REACTIONS (3)
  - Peripheral swelling [None]
  - Platelet count decreased [None]
  - Pain [None]

NARRATIVE: CASE EVENT DATE: 20190627
